FAERS Safety Report 20746915 (Version 2)
Quarter: 2022Q2

REPORT INFORMATION
  Report Type: Spontaneous
  Country: TR (occurrence: TR)
  Receive Date: 20220425
  Receipt Date: 20220505
  Transmission Date: 20220720
  Serious: Yes (Life-Threatening, Hospitalization)
  Sender: FDA-Public Use
  Company Number: TR-TEVA-2022-TR-2030163

PATIENT
  Age: 64 Year
  Sex: Male

DRUGS (46)
  1. COTRIMOXAZOLE [Suspect]
     Active Substance: SULFAMETHOXAZOLE\TRIMETHOPRIM
     Indication: Pseudomonas infection
     Route: 065
  2. COTRIMOXAZOLE [Suspect]
     Active Substance: SULFAMETHOXAZOLE\TRIMETHOPRIM
     Indication: Acinetobacter bacteraemia
  3. COTRIMOXAZOLE [Suspect]
     Active Substance: SULFAMETHOXAZOLE\TRIMETHOPRIM
     Indication: Klebsiella infection
  4. COTRIMOXAZOLE [Suspect]
     Active Substance: SULFAMETHOXAZOLE\TRIMETHOPRIM
     Indication: Stenotrophomonas infection
  5. CLARITHROMYCIN [Suspect]
     Active Substance: CLARITHROMYCIN
     Indication: Pseudomonas infection
     Route: 065
  6. CLARITHROMYCIN [Suspect]
     Active Substance: CLARITHROMYCIN
     Indication: Stenotrophomonas infection
  7. CLARITHROMYCIN [Suspect]
     Active Substance: CLARITHROMYCIN
     Indication: Acinetobacter bacteraemia
  8. CLARITHROMYCIN [Suspect]
     Active Substance: CLARITHROMYCIN
     Indication: Klebsiella infection
  9. PIPERACILLIN AND TAZOBACTAM [Suspect]
     Active Substance: PIPERACILLIN SODIUM\TAZOBACTAM SODIUM
     Indication: Pseudomonas infection
     Route: 065
  10. PIPERACILLIN AND TAZOBACTAM [Suspect]
     Active Substance: PIPERACILLIN SODIUM\TAZOBACTAM SODIUM
     Indication: Acinetobacter bacteraemia
  11. PIPERACILLIN AND TAZOBACTAM [Suspect]
     Active Substance: PIPERACILLIN SODIUM\TAZOBACTAM SODIUM
     Indication: Klebsiella infection
  12. PIPERACILLIN AND TAZOBACTAM [Suspect]
     Active Substance: PIPERACILLIN SODIUM\TAZOBACTAM SODIUM
     Indication: Stenotrophomonas infection
  13. MEROPENEM [Suspect]
     Active Substance: MEROPENEM
     Indication: Pseudomonas infection
     Route: 065
  14. MEROPENEM [Suspect]
     Active Substance: MEROPENEM
     Indication: Stenotrophomonas infection
  15. MEROPENEM [Suspect]
     Active Substance: MEROPENEM
     Indication: Acinetobacter bacteraemia
  16. MEROPENEM [Suspect]
     Active Substance: MEROPENEM
     Indication: Klebsiella infection
  17. VANCOMYCIN [Suspect]
     Active Substance: VANCOMYCIN
     Indication: Pseudomonas infection
     Route: 065
  18. VANCOMYCIN [Suspect]
     Active Substance: VANCOMYCIN
     Indication: Klebsiella infection
  19. VANCOMYCIN [Suspect]
     Active Substance: VANCOMYCIN
     Indication: Acinetobacter bacteraemia
  20. VANCOMYCIN [Suspect]
     Active Substance: VANCOMYCIN
     Indication: Stenotrophomonas infection
  21. CEFOPERAZONE\SULBACTAM [Suspect]
     Active Substance: CEFOPERAZONE\SULBACTAM
     Indication: Pseudomonas infection
     Route: 065
  22. CEFOPERAZONE\SULBACTAM [Suspect]
     Active Substance: CEFOPERAZONE\SULBACTAM
     Indication: Acinetobacter bacteraemia
  23. CEFOPERAZONE\SULBACTAM [Suspect]
     Active Substance: CEFOPERAZONE\SULBACTAM
     Indication: Klebsiella infection
  24. CEFOPERAZONE\SULBACTAM [Suspect]
     Active Substance: CEFOPERAZONE\SULBACTAM
     Indication: Stenotrophomonas infection
  25. FOSFOMYCIN [Suspect]
     Active Substance: FOSFOMYCIN
     Indication: Pseudomonas infection
     Route: 065
  26. FOSFOMYCIN [Suspect]
     Active Substance: FOSFOMYCIN
     Indication: Stenotrophomonas infection
  27. FOSFOMYCIN [Suspect]
     Active Substance: FOSFOMYCIN
     Indication: Klebsiella infection
  28. FOSFOMYCIN [Suspect]
     Active Substance: FOSFOMYCIN
     Indication: Acinetobacter bacteraemia
  29. IMIPENEM [Suspect]
     Active Substance: IMIPENEM
     Indication: Pseudomonas infection
     Route: 065
  30. IMIPENEM [Suspect]
     Active Substance: IMIPENEM
     Indication: Acinetobacter bacteraemia
  31. IMIPENEM [Suspect]
     Active Substance: IMIPENEM
     Indication: Klebsiella infection
  32. IMIPENEM [Suspect]
     Active Substance: IMIPENEM
     Indication: Stenotrophomonas infection
  33. LINEZOLID [Suspect]
     Active Substance: LINEZOLID
     Indication: Pseudomonas infection
     Route: 065
  34. LINEZOLID [Suspect]
     Active Substance: LINEZOLID
     Indication: Stenotrophomonas infection
  35. LINEZOLID [Suspect]
     Active Substance: LINEZOLID
     Indication: Klebsiella infection
  36. LINEZOLID [Suspect]
     Active Substance: LINEZOLID
     Indication: Acinetobacter bacteraemia
  37. COLISTIN [Suspect]
     Active Substance: COLISTIN
     Indication: Pseudomonas infection
     Route: 065
  38. COLISTIN [Suspect]
     Active Substance: COLISTIN
     Indication: Acinetobacter bacteraemia
  39. COLISTIN [Suspect]
     Active Substance: COLISTIN
     Indication: Klebsiella infection
  40. COLISTIN [Suspect]
     Active Substance: COLISTIN
     Indication: Stenotrophomonas infection
  41. AVIBACTAM SODIUM\CEFTAZIDIME [Suspect]
     Active Substance: AVIBACTAM SODIUM\CEFTAZIDIME
     Indication: Pseudomonas infection
     Route: 065
  42. AVIBACTAM SODIUM\CEFTAZIDIME [Suspect]
     Active Substance: AVIBACTAM SODIUM\CEFTAZIDIME
     Indication: Stenotrophomonas infection
  43. AVIBACTAM SODIUM\CEFTAZIDIME [Suspect]
     Active Substance: AVIBACTAM SODIUM\CEFTAZIDIME
     Indication: Klebsiella infection
  44. AVIBACTAM SODIUM\CEFTAZIDIME [Suspect]
     Active Substance: AVIBACTAM SODIUM\CEFTAZIDIME
     Indication: Acinetobacter bacteraemia
  45. NOREPINEPHRINE [Suspect]
     Active Substance: NOREPINEPHRINE
     Indication: Hypotension
     Route: 050
  46. HYDROCORTISONE [Concomitant]
     Active Substance: HYDROCORTISONE
     Indication: Hypotension
     Route: 065

REACTIONS (2)
  - Drug resistance [Unknown]
  - Drug ineffective [Unknown]
